FAERS Safety Report 20947082 (Version 2)
Quarter: 2022Q2

REPORT INFORMATION
  Report Type: Spontaneous
  Country: US (occurrence: None)
  Receive Date: 20220610
  Receipt Date: 20220611
  Transmission Date: 20220721
  Serious: Yes (Other)
  Sender: FDA-Public Use
  Company Number: US-ROCHE-3111336

PATIENT
  Sex: Female

DRUGS (2)
  1. ALECENSA [Suspect]
     Active Substance: ALECTINIB HYDROCHLORIDE
     Indication: Non-small cell lung cancer
     Route: 065
     Dates: start: 20180418, end: 2022
  2. BRIGATINIB [Concomitant]
     Active Substance: BRIGATINIB
     Indication: Non-small cell lung cancer
     Dates: end: 2022

REACTIONS (2)
  - Renal injury [Unknown]
  - Kidney fibrosis [Unknown]
